FAERS Safety Report 4557498-8 (Version None)
Quarter: 2005Q1

REPORT INFORMATION
  Report Type: 
  Country: None (occurrence: None)
  Receive Date: 20050103
  Receipt Date: 20040903
  Transmission Date: 20050727
  Serious: Yes (Other)
  Sender: FDA-Public Use
  Company Number: 2004UW18676

PATIENT
  Age: 58 Year
  Sex: Female

DRUGS (1)
  1. CRESTOR [Suspect]
     Dosage: 40 MG DAILY PO
     Route: 048

REACTIONS (2)
  - ABASIA [None]
  - MUSCULAR WEAKNESS [None]
